FAERS Safety Report 6146138-2 (Version None)
Quarter: 2009Q2

REPORT INFORMATION
  Report Type: 
  Country: None (occurrence: None)
  Receive Date: 20090407
  Receipt Date: 20090326
  Transmission Date: 20091009
  Serious: Yes (Other)
  Sender: FDA-Public Use
  Company Number: CH-SANOFI-SYNTHELABO-A01200903326

PATIENT
  Age: 44 Year
  Sex: Female

DRUGS (6)
  1. FLUCTINE [Suspect]
     Indication: OBSESSIVE-COMPULSIVE DISORDER
     Dosage: 20 MG
     Route: 048
     Dates: start: 20060101, end: 20080117
  2. DORMICUM [Suspect]
     Indication: OBSESSIVE-COMPULSIVE DISORDER
     Dosage: 7.5 MG
     Route: 048
     Dates: start: 20060101, end: 20080117
  3. XANAX [Suspect]
     Indication: OBSESSIVE-COMPULSIVE DISORDER
     Dosage: UNK
     Route: 048
     Dates: start: 20060101, end: 20080117
  4. RISPERDAL [Suspect]
     Indication: OBSESSIVE-COMPULSIVE DISORDER
     Dosage: 1 MG
     Route: 048
     Dates: start: 20080117
  5. RIVOTRIL [Suspect]
     Indication: OBSESSIVE-COMPULSIVE DISORDER
     Dosage: 0.5 MG
     Route: 048
     Dates: start: 20080117
  6. ZOLPIDEM [Suspect]
     Indication: OBSESSIVE-COMPULSIVE DISORDER
     Dosage: UNK
     Route: 048
     Dates: end: 20080117

REACTIONS (1)
  - DRUG EXPOSURE DURING PREGNANCY [None]
